FAERS Safety Report 8954476 (Version 1)
Quarter: 2012Q4

REPORT INFORMATION
  Report Type: 
  Country: US (occurrence: US)
  Receive Date: 20121207
  Receipt Date: 20121207
  Transmission Date: 20130627
  Serious: Yes (Other)
  Sender: FDA-Public Use
  Company Number: US-ROCHE-1163352

PATIENT

DRUGS (3)
  1. BEVACIZUMAB [Suspect]
     Indication: GLIOBLASTOMA MULTIFORME
     Route: 065
  2. TEMOZOLOMIDE [Suspect]
     Indication: GLIOBLASTOMA MULTIFORME
     Dosage: 150-200 mg/m2
     Route: 065
  3. IRINOTECAN [Suspect]
     Indication: GLIOBLASTOMA MULTIFORME
     Dosage: 125 or 324 mg/m2
     Route: 065

REACTIONS (11)
  - Neutropenia [Unknown]
  - Thrombocytopenia [Unknown]
  - Fatigue [Unknown]
  - Embolism [Unknown]
  - Pneumocystis jiroveci pneumonia [Unknown]
  - Wound dehiscence [Unknown]
  - Optic nerve injury [Unknown]
  - Rectal abscess [Unknown]
  - Gastrointestinal perforation [Unknown]
  - Central nervous system haemorrhage [Unknown]
  - Acute myeloid leukaemia [Unknown]
